FAERS Safety Report 5958252-2 (Version None)
Quarter: 2008Q4

REPORT INFORMATION
  Report Type: 
  Country: None (occurrence: None)
  Receive Date: 20081119
  Receipt Date: 20081107
  Transmission Date: 20090506
  Serious: Yes (Hospitalization)
  Sender: FDA-Public Use
  Company Number: JP-BAYER-200812721BYL

PATIENT
  Age: 61 Year
  Sex: Male
  Weight: 57 kg

DRUGS (3)
  1. NEXAVAR [Suspect]
     Indication: RENAL CELL CARCINOMA STAGE IV
     Route: 048
     Dates: start: 20080804
  2. NEXAVAR [Suspect]
     Route: 048
     Dates: start: 20080810, end: 20080814
  3. NEXAVAR [Suspect]
     Route: 048
     Dates: start: 20080820, end: 20080830

REACTIONS (4)
  - ANAL FISTULA [None]
  - RASH [None]
  - URTICARIA [None]
  - VOMITING [None]
